FAERS Safety Report 25907633 (Version 2)
Quarter: 2025Q4

REPORT INFORMATION
  Report Type: Report from Study
  Country: EU (occurrence: EU)
  Receive Date: 20251010
  Receipt Date: 20251017
  Transmission Date: 20260117
  Serious: Yes (Death)
  Sender: RECORDATI
  Company Number: EU-002147023-NVSC2025IT154669

PATIENT
  Sex: Male

DRUGS (4)
  1. SIGNIFOR [Suspect]
     Active Substance: PASIREOTIDE DIASPARTATE
     Indication: Neuroendocrine tumour of the thymus
     Route: 042
  2. SIGNIFOR [Suspect]
     Active Substance: PASIREOTIDE DIASPARTATE
     Indication: Neuroendocrine tumour of the lung
  3. AFINITOR [Suspect]
     Active Substance: EVEROLIMUS
     Indication: Neuroendocrine tumour of the lung
     Dosage: UNK
     Route: 048
  4. AFINITOR [Suspect]
     Active Substance: EVEROLIMUS
     Indication: Neuroendocrine tumour of the thymus

REACTIONS (2)
  - Death [Fatal]
  - Off label use [Recovered/Resolved]
